FAERS Safety Report 9468871 (Version 2)
Quarter: 2014Q1

REPORT INFORMATION
  Report Type: Spontaneous
  Country: US (occurrence: US)
  Receive Date: 20130821
  Receipt Date: 20140130
  Transmission Date: 20141002
  Serious: Yes (Hospitalization)
  Sender: FDA-Public Use
  Company Number: US-B.I. PHARMACEUTICALS,INC./RIDGEFIELD-2013-BI-25628BP

PATIENT
  Age: 74 Year
  Sex: Male
  Weight: 127.01 kg

DRUGS (14)
  1. PRADAXA [Suspect]
     Indication: ANTICOAGULANT THERAPY
     Dosage: 300 MG
     Dates: start: 20110526, end: 20111011
  2. OMEPRAZOLE [Concomitant]
     Dosage: 40 MG
  3. ALLOPURINOL [Concomitant]
     Dosage: 300 MG
  4. BUMETANIDE [Concomitant]
     Dosage: 1 MG
  5. GABAPENTIN [Concomitant]
     Dosage: 1200 MG
  6. LISINOPRIL [Concomitant]
     Dosage: 40 MG
  7. TERAZOSIN [Concomitant]
     Dosage: 3 MG
  8. AMANTADINE [Concomitant]
     Dosage: 200 MG
  9. ALBUTEROL [Concomitant]
     Indication: DYSPNOEA
     Route: 055
  10. FLUTICASONE [Concomitant]
  11. POTASSIUM CHLORIDE [Concomitant]
     Dosage: 10 MEQ
  12. IRON [Concomitant]
     Dosage: 150 MG
  13. AMIODARONE [Concomitant]
     Dosage: 200 MG
  14. CARDIZEM CD [Concomitant]
     Dosage: 240 MG

REACTIONS (2)
  - Gastrointestinal haemorrhage [Unknown]
  - Haemorrhagic anaemia [Unknown]
